FAERS Safety Report 9978886 (Version 1)
Quarter: 2014Q1

REPORT INFORMATION
  Report Type: Report from Study
  Country: US (occurrence: US)
  Receive Date: 20140306
  Receipt Date: 20140306
  Transmission Date: 20141002
  Serious: No
  Sender: FDA-Public Use
  Company Number: US-ABBVIE-13P-163-1168686-00

PATIENT
  Age: 30 Year
  Sex: Male
  Weight: 116.22 kg

DRUGS (3)
  1. HUMIRA [Suspect]
     Indication: COLITIS ULCERATIVE
     Dosage: LOADING DOSE
     Dates: start: 20131002, end: 20131002
  2. HUMIRA [Suspect]
     Indication: CROHN^S DISEASE
     Dosage: ONCE
     Route: 058
     Dates: start: 20131016, end: 20131016
  3. HUMIRA [Suspect]
     Route: 058
     Dates: start: 20131030, end: 20131102

REACTIONS (3)
  - Adverse reaction [Unknown]
  - Rash pruritic [Recovering/Resolving]
  - Rash erythematous [Recovering/Resolving]
